FAERS Safety Report 7383314-5 (Version None)
Quarter: 2011Q1

REPORT INFORMATION
  Report Type: 
  Country: None (occurrence: None)
  Receive Date: 20110325
  Receipt Date: 20110325
  Transmission Date: 20110831
  Serious: Yes (Hospitalization)
  Sender: FDA-Public Use
  Company Number: None

PATIENT
  Age: 54 Year
  Sex: Female
  Weight: 81 kg

DRUGS (9)
  1. INTELENCE [Suspect]
     Indication: URTICARIA
     Dosage: 200MG BID PO  SINCE EARLY JAN.
     Route: 048
  2. RISPERIDONE [Concomitant]
  3. PREZISTA [Concomitant]
  4. VALTREX [Concomitant]
  5. GABAPENTIN [Concomitant]
  6. LANSOPRAZOLE [Concomitant]
  7. LEXAPRO [Concomitant]
  8. NORVIR [Concomitant]
  9. DEPAKOTE ER [Concomitant]

REACTIONS (4)
  - PRURITUS [None]
  - RASH GENERALISED [None]
  - PNEUMONIA [None]
  - BURNING SENSATION [None]
